FAERS Safety Report 5242851-X (Version None)
Quarter: 2007Q1

REPORT INFORMATION
  Report Type: 
  Country: None (occurrence: None)
  Receive Date: 20070215
  Receipt Date: 20070205
  Transmission Date: 20070707
  Serious: Yes (Other)
  Sender: FDA-Public Use
  Company Number: GXKR2007US01435

PATIENT
  Age: 16 Year
  Sex: Female

DRUGS (1)
  1. METOCLOPRAMIDE [Suspect]
     Indication: NAUSEA
     Dosage: 5 MG, QID,ORAL
     Route: 048

REACTIONS (2)
  - ASTERIXIS [None]
  - OCULOGYRATION [None]
